FAERS Safety Report 24412434 (Version 1)
Quarter: 2024Q4

REPORT INFORMATION
  Report Type: Report from Study
  Country: US (occurrence: US)
  Receive Date: 20241008
  Receipt Date: 20241008
  Transmission Date: 20250115
  Serious: Yes (Other)
  Sender: BAYER
  Company Number: US-BAYER-2024A110254

PATIENT
  Age: 55 Year
  Sex: Male

DRUGS (2)
  1. STIVARGA [Suspect]
     Active Substance: REGORAFENIB MONOHYDRATE
     Indication: Colon cancer
     Dosage: 160 MG, QD FOR 21 DAYS, 7 DAYS OFF
     Route: 048
     Dates: start: 202407
  2. STIVARGA [Suspect]
     Active Substance: REGORAFENIB MONOHYDRATE
     Indication: Colon cancer
     Dosage: 80 MG, QD
     Route: 048
     Dates: start: 20240814, end: 2024

REACTIONS (6)
  - Peripheral swelling [Recovering/Resolving]
  - Blister [Recovered/Resolved]
  - Gait disturbance [Recovering/Resolving]
  - Pain in extremity [Recovered/Resolved]
  - Diarrhoea [Recovering/Resolving]
  - Fatigue [Not Recovered/Not Resolved]
